FAERS Safety Report 16614298 (Version 1)
Quarter: 2019Q3

REPORT INFORMATION
  Report Type: Spontaneous
  Country: AU (occurrence: AU)
  Receive Date: 20190723
  Receipt Date: 20190723
  Transmission Date: 20191004
  Serious: Yes (Other)
  Sender: FDA-Public Use
  Company Number: AU-PFIZER INC-2019307302

PATIENT
  Age: 54 Year
  Sex: Female

DRUGS (2)
  1. DILANTIN [Suspect]
     Active Substance: PHENYTOIN
     Dosage: UNK
  2. DILANTIN [Suspect]
     Active Substance: PHENYTOIN
     Dosage: UNK

REACTIONS (3)
  - Oral discomfort [Unknown]
  - Oral candidiasis [Unknown]
  - Seizure [Unknown]
